FAERS Safety Report 12336224 (Version 1)
Quarter: 2016Q2

REPORT INFORMATION
  Report Type: Spontaneous
  Country: CZ (occurrence: CZ)
  Receive Date: 20160505
  Receipt Date: 20160505
  Transmission Date: 20160815
  Serious: Yes (Other)
  Sender: FDA-Public Use
  Company Number: CZ-ACCORD-040180

PATIENT
  Age: 30 Year
  Sex: Male

DRUGS (6)
  1. USTEKINUMAB [Concomitant]
     Active Substance: USTEKINUMAB
     Indication: PSORIASIS
     Dosage: SECOND INJECTION FOUR WEEKS LATER AND THEN ONCE EVERY TWELVE WEEKS.?PATIENT WEIGHING MORE THAN 100K
     Route: 058
  2. CEFTRIAXONE. [Concomitant]
     Active Substance: CEFTRIAXONE
     Indication: NEUROBORRELIOSIS
  3. METHOTREXATE [Suspect]
     Active Substance: METHOTREXATE
     Indication: PSORIASIS
  4. ETANERCEPT [Concomitant]
     Active Substance: ETANERCEPT
     Indication: PSORIASIS
  5. CICLOSPORIN [Suspect]
     Active Substance: CYCLOSPORINE
     Indication: PSORIASIS
  6. ADALIMUMAB [Concomitant]
     Active Substance: ADALIMUMAB
     Indication: PSORIASIS
     Dates: start: 2008

REACTIONS (3)
  - Drug ineffective [Unknown]
  - Psoriasis [Unknown]
  - Dermatitis exfoliative [Unknown]
